FAERS Safety Report 21020543 (Version 3)
Quarter: 2022Q4

REPORT INFORMATION
  Report Type: Spontaneous
  Country: US (occurrence: US)
  Receive Date: 20220629
  Receipt Date: 20221018
  Transmission Date: 20230112
  Serious: Yes (Other)
  Sender: FDA-Public Use
  Company Number: US-JNJFOC-20220644949

PATIENT
  Age: 70 Year
  Sex: Male

DRUGS (5)
  1. ZYTIGA [Suspect]
     Active Substance: ABIRATERONE ACETATE
     Indication: Product used for unknown indication
     Dosage: 2 TABLET
     Route: 048
  2. ORGOVYX [Suspect]
     Active Substance: RELUGOLIX
     Indication: Prostate cancer
     Route: 048
     Dates: start: 20220509, end: 20220509
  3. ORGOVYX [Suspect]
     Active Substance: RELUGOLIX
     Route: 048
     Dates: start: 20220510
  4. ORGOVYX [Suspect]
     Active Substance: RELUGOLIX
     Route: 048
  5. PREDNISONE [Concomitant]
     Active Substance: PREDNISONE
     Indication: Product used for unknown indication
     Route: 065

REACTIONS (11)
  - Surgery [Unknown]
  - Loss of consciousness [Unknown]
  - Arrhythmia [Unknown]
  - Dizziness [Not Recovered/Not Resolved]
  - Hot flush [Not Recovered/Not Resolved]
  - Incontinence [Not Recovered/Not Resolved]
  - Blood glucose increased [Unknown]
  - Night sweats [Unknown]
  - Nausea [Unknown]
  - Vertigo [Unknown]
  - Head injury [Unknown]

NARRATIVE: CASE EVENT DATE: 20220519
